FAERS Safety Report 15252298 (Version 3)
Quarter: 2018Q4

REPORT INFORMATION
  Report Type: Spontaneous
  Country: FR (occurrence: FR)
  Receive Date: 20180807
  Receipt Date: 20181005
  Transmission Date: 20190204
  Serious: Yes (Other)
  Sender: FDA-Public Use
  Company Number: FR-ALLERGAN-1838632US

PATIENT
  Age: 28 Year
  Sex: Female
  Weight: 44 kg

DRUGS (3)
  1. ESOMEPRAZOLE. [Suspect]
     Active Substance: ESOMEPRAZOLE MAGNESIUM
     Indication: DYSPEPSIA
     Dosage: 40 MG, QD
     Route: 048
     Dates: start: 201807, end: 20180727
  2. OMEPRAZOLE. [Suspect]
     Active Substance: OMEPRAZOLE
     Indication: HELICOBACTER INFECTION
     Dosage: 20 MG, BID
     Route: 048
  3. PYLERA [Suspect]
     Active Substance: BISMUTH SUBCITRATE POTASSIUM\METRONIDAZOLE\TETRACYCLINE HYDROCHLORIDE
     Indication: HELICOBACTER INFECTION
     Dosage: 3 CAPSULES, TID
     Route: 048
     Dates: start: 20180727

REACTIONS (16)
  - Sensory loss [Unknown]
  - Menstruation delayed [Recovered/Resolved]
  - Stress [Not Recovered/Not Resolved]
  - Insomnia [Unknown]
  - Dizziness [Recovering/Resolving]
  - Anxiety [Unknown]
  - Ageusia [Recovering/Resolving]
  - Cardiac discomfort [Unknown]
  - Memory impairment [Recovering/Resolving]
  - Emotional poverty [Not Recovered/Not Resolved]
  - Off label use [Unknown]
  - Product dose omission [Unknown]
  - Hypoaesthesia [Recovered/Resolved]
  - Coordination abnormal [Unknown]
  - Feeling abnormal [Unknown]
  - Burning sensation [Recovered/Resolved]

NARRATIVE: CASE EVENT DATE: 201807
